FAERS Safety Report 4319077-7 (Version None)
Quarter: 2004Q1

REPORT INFORMATION
  Report Type: 
  Country: None (occurrence: None)
  Receive Date: 20040316
  Receipt Date: 20040306
  Transmission Date: 20041129
  Serious: No
  Sender: FDA-Public Use
  Company Number: 2004CG00488

PATIENT
  Age: 55 Year
  Sex: Female

DRUGS (2)
  1. NEXIUM [Suspect]
     Indication: GASTRIC ULCER
     Dates: start: 20040301, end: 20040306
  2. PROCTOLOG [Suspect]
     Dates: end: 20040306

REACTIONS (2)
  - ACCOMMODATION DISORDER [None]
  - OCULAR HYPERTENSION [None]
